FAERS Safety Report 7896532 (Version 4)
Quarter: 2013Q1

REPORT INFORMATION
  Report Type: Spontaneous
  Country: US (occurrence: None)
  Receive Date: 20110324
  Receipt Date: 20130222
  Transmission Date: 20140127
  Serious: Yes (Other)
  Sender: FDA-Public Use
  Company Number: ACO_22323_2010

PATIENT
  Age: 47 Year
  Sex: Male
  Weight: 86.2 kg

DRUGS (18)
  1. AMPYRA [Suspect]
     Indication: GAIT DISTURBANCE
     Route: 048
     Dates: start: 20100312, end: 20100805
  2. NEURONTIN [Concomitant]
  3. XANAX [Concomitant]
  4. AMBIEN [Concomitant]
  5. TYSABRI [Concomitant]
  6. PROVIGIL [Concomitant]
  7. VITAMIN D NOS (VITAMIN D NOS) [Concomitant]
  8. NORTRIPTYLINE (NORTRIPTYLINE) [Concomitant]
  9. BACLOFEN [Concomitant]
  10. ADVIL (IBUPROFEN) [Concomitant]
  11. ALEVE (IBUPROFEN) [Concomitant]
  12. ZOLOFT (SERTRALINE HYDROCHLORIDE) [Concomitant]
  13. OMEGA 3 FISH OIL (FISH OIL) [Concomitant]
  14. VITAMIN C [Concomitant]
  15. VITAMIN B (VITAMIN B COMPLEX) [Concomitant]
  16. MULTIVITAMIN (VITAMINS NOS) [Concomitant]
  17. CITRUCEL (METHYLCELLULOSE) [Concomitant]
  18. MIRALAX [Concomitant]

REACTIONS (26)
  - Multiple sclerosis relapse [None]
  - Feeling abnormal [None]
  - Circulatory collapse [None]
  - Dehydration [None]
  - Thinking abnormal [None]
  - Fatigue [None]
  - Communication disorder [None]
  - Somnolence [None]
  - Depression [None]
  - Anxiety [None]
  - Pseudoradicular syndrome [None]
  - Muscle spasticity [None]
  - JC virus test positive [None]
  - Balance disorder [None]
  - Inappropriate schedule of drug administration [None]
  - Dyspnoea [None]
  - Heart rate decreased [None]
  - Treatment noncompliance [None]
  - Muscular weakness [None]
  - Hyporesponsive to stimuli [None]
  - Movement disorder [None]
  - Temperature intolerance [None]
  - Dyspnoea [None]
  - Hyperventilation [None]
  - Muscle spasticity [None]
  - Tremor [None]
